FAERS Safety Report 6360736-2 (Version None)
Quarter: 2009Q3

REPORT INFORMATION
  Report Type: 
  Country: None (occurrence: None)
  Receive Date: 20090918
  Receipt Date: 20090911
  Transmission Date: 20100115
  Serious: Yes (Other)
  Sender: FDA-Public Use
  Company Number: FR-WYE-G04427009

PATIENT
  Age: 57 Year
  Sex: Male

DRUGS (2)
  1. RHINADVIL [Suspect]
     Indication: NASAL CONGESTION
     Dosage: 1 TO 3 TABLETS TOTAL DAILY
     Route: 048
     Dates: start: 20090801, end: 20090801
  2. DEPAKENE [Concomitant]
     Indication: EPILEPSY
     Dosage: UNKNOWN
     Route: 048

REACTIONS (3)
  - CONDITION AGGRAVATED [None]
  - EPILEPSY [None]
  - MEDICATION ERROR [None]
